FAERS Safety Report 24575233 (Version 1)
Quarter: 2024Q4

REPORT INFORMATION
  Report Type: Spontaneous
  Country: US (occurrence: None)
  Receive Date: 20241101
  Receipt Date: 20241101
  Transmission Date: 20250115
  Serious: No
  Sender: Public
  Company Number: None

PATIENT
  Age: 64 Year
  Sex: Female

DRUGS (2)
  1. AMBRISENTAN [Suspect]
     Active Substance: AMBRISENTAN
     Indication: Pulmonary arterial hypertension
     Dosage: 5MG QD ORAL
     Route: 048
     Dates: start: 20230719, end: 20231004
  2. TADALAFIL [Suspect]
     Active Substance: TADALAFIL

REACTIONS (6)
  - Dyspnoea [None]
  - Hypoxia [None]
  - Hypervolaemia [None]
  - Condition aggravated [None]
  - Nonspecific reaction [None]
  - Diastolic dysfunction [None]

NARRATIVE: CASE EVENT DATE: 20241004
